FAERS Safety Report 4708531-1 (Version None)
Quarter: 2005Q3

REPORT INFORMATION
  Report Type: 
  Country: None (occurrence: None)
  Receive Date: 20050705
  Receipt Date: 20050624
  Transmission Date: 20060218
  Serious: Yes (Death, Hospitalization)
  Sender: FDA-Public Use
  Company Number: HQWYE684024JUN05

PATIENT
  Age: 45 Year
  Sex: Male

DRUGS (7)
  1. EUPANTOL                (PANTOPRAZOL ) [Suspect]
     Dosage: ^SOME (S) SOME DF^
     Dates: start: 20050408, end: 20050602
  2. AZACTAM [Suspect]
     Dosage: 2 G 3X PER 1 DAY INTRAVENOUS
     Route: 042
     Dates: start: 20050517, end: 20050526
  3. VANCOMYCIN [Suspect]
     Dosage: 1 G 1X PER 1 DAY INTRAVENOUS
     Route: 042
     Dates: start: 20050408, end: 20050602
  4. ZYVOX [Suspect]
     Dosage: 600 MG 2X PER 1 DAY INTRAVENOUS
     Route: 042
     Dates: start: 20050408, end: 20050602
  5. CANCIDAS [Concomitant]
  6. ............... [Concomitant]
  7. CANCIDAS [Concomitant]

REACTIONS (8)
  - CARNITINE DEFICIENCY [None]
  - DRUG TOXICITY [None]
  - HAEMORRHAGE [None]
  - HEPATIC FAILURE [None]
  - HEPATITIS FULMINANT [None]
  - LACTIC ACIDOSIS [None]
  - LUNG DISORDER [None]
  - SHOCK [None]
